APPROVED DRUG PRODUCT: NITROGLYCERIN
Active Ingredient: NITROGLYCERIN
Strength: 0.4MG/HR
Dosage Form/Route: FILM, EXTENDED RELEASE;TRANSDERMAL
Application: A075115 | Product #002
Applicant: LANNETT CO INC
Approved: Aug 10, 2004 | RLD: No | RS: No | Type: DISCN